FAERS Safety Report 5508757-3 (Version None)
Quarter: 2007Q4

REPORT INFORMATION
  Report Type: 
  Country: None (occurrence: None)
  Receive Date: 20071031
  Receipt Date: 20070612
  Transmission Date: 20080405
  Serious: No
  Sender: FDA-Public Use
  Company Number: 2007PV033017

PATIENT
  Age: 54 Year
  Sex: Female
  Weight: 107.0489 kg

DRUGS (4)
  1. SYMLIN [Suspect]
     Indication: TYPE 2 DIABETES MELLITUS
     Dosage: 180 MCG;TID;SC ; 180 MCG;TID;SC ; 30 MCG;TID;SC
     Route: 058
     Dates: start: 20060101, end: 20070228
  2. SYMLIN [Suspect]
     Indication: TYPE 2 DIABETES MELLITUS
     Dosage: 180 MCG;TID;SC ; 180 MCG;TID;SC ; 30 MCG;TID;SC
     Route: 058
     Dates: start: 20070307
  3. LANTUS [Concomitant]
  4. AVANDAMET [Concomitant]

REACTIONS (3)
  - DIARRHOEA [None]
  - VOMITING [None]
  - WEIGHT DECREASED [None]
